FAERS Safety Report 8321243 (Version 2)
Quarter: 2014Q4

REPORT INFORMATION
  Report Type: Spontaneous
  Country: US (occurrence: US)
  Receive Date: 20100113
  Receipt Date: 20141104
  Transmission Date: 20150529
  Serious: Yes (Death)
  Sender: FDA-Public Use
  Company Number: US-BAYER-201010988GPV

PATIENT
  Age: 35 Year
  Sex: Female

DRUGS (4)
  1. COCAINE [Suspect]
     Active Substance: COCAINE
     Indication: COMPLETED SUICIDE
  2. LORAZEPAM. [Suspect]
     Active Substance: LORAZEPAM
  3. CARISOPRODOL. [Suspect]
     Active Substance: CARISOPRODOL
     Indication: COMPLETED SUICIDE
  4. PARACETAMOL + DIPHENHYDRAMINE [Suspect]
     Active Substance: ACETAMINOPHEN\DIPHENHYDRAMINE
     Indication: COMPLETED SUICIDE

REACTIONS (1)
  - Toxicity to various agents [Fatal]
